FAERS Safety Report 15475444 (Version 1)
Quarter: 2018Q4

REPORT INFORMATION
  Report Type: Other
  Country: NO (occurrence: NO)
  Receive Date: 20181008
  Receipt Date: 20181008
  Transmission Date: 20190205
  Serious: Yes (Hospitalization)
  Sender: FDA-Public Use
  Company Number: NO-GE HEALTHCARE LIFE SCIENCES-2018CSU003889

PATIENT

DRUGS (1)
  1. OMNIPAQUE [Suspect]
     Active Substance: IOHEXOL
     Indication: PRODUCT USED FOR UNKNOWN INDICATION
     Dosage: 120 ML, SINGLE
     Route: 048
     Dates: start: 20180905, end: 20180905

REACTIONS (4)
  - Rash [Unknown]
  - Dyspnoea [Unknown]
  - Blister [Unknown]
  - Sneezing [Unknown]

NARRATIVE: CASE EVENT DATE: 20180905
